FAERS Safety Report 5601095-X (Version None)
Quarter: 2008Q1

REPORT INFORMATION
  Report Type: 
  Country: None (occurrence: None)
  Receive Date: 20080124
  Receipt Date: 20080109
  Transmission Date: 20080703
  Serious: Yes (Other)
  Sender: FDA-Public Use
  Company Number: AU-BAYER-200810520GPV

PATIENT
  Age: 21 Year
  Sex: Male

DRUGS (1)
  1. ASPRO CLEAR EXTRA STRENGTH / ASPIRIN [Suspect]
     Indication: PAIN
     Route: 048

REACTIONS (2)
  - DYSPNOEA [None]
  - PHARYNGEAL OEDEMA [None]
